FAERS Safety Report 6258991-2 (Version None)
Quarter: 2009Q3

REPORT INFORMATION
  Report Type: 
  Country: None (occurrence: None)
  Receive Date: 20090707
  Receipt Date: 20090626
  Transmission Date: 20100115
  Serious: Yes (Hospitalization)
  Sender: FDA-Public Use
  Company Number: PHHY2009CA26149

PATIENT
  Sex: Male

DRUGS (3)
  1. CLOZARIL [Suspect]
     Indication: SCHIZOPHRENIA
     Dosage: 37.5 MG, UNK
     Route: 048
     Dates: start: 20090330, end: 20090525
  2. CLONAZEPAM [Concomitant]
  3. SINEMET [Concomitant]

REACTIONS (4)
  - DELIRIUM [None]
  - GAIT DISTURBANCE [None]
  - HALLUCINATION [None]
  - SOMNOLENCE [None]
